FAERS Safety Report 6161284-5 (Version None)
Quarter: 2009Q2

REPORT INFORMATION
  Report Type: 
  Country: None (occurrence: None)
  Receive Date: 20090421
  Receipt Date: 20090413
  Transmission Date: 20091009
  Serious: Yes (Hospitalization)
  Sender: FDA-Public Use
  Company Number: US-BIOGENIDEC-2009BI011428

PATIENT
  Sex: Female

DRUGS (2)
  1. AVONEX [Suspect]
     Indication: MULTIPLE SCLEROSIS
     Route: 030
     Dates: start: 19971001
  2. AVONEX [Suspect]
     Route: 030
     Dates: start: 20070517, end: 20081001

REACTIONS (6)
  - BLINDNESS [None]
  - COORDINATION ABNORMAL [None]
  - INFLUENZA LIKE ILLNESS [None]
  - MEMORY IMPAIRMENT [None]
  - PNEUMONIA [None]
  - SENSORY LOSS [None]
